FAERS Safety Report 8552332-3 (Version None)
Quarter: 2012Q3

REPORT INFORMATION
  Report Type: 
  Country: None (occurrence: None)
  Receive Date: 20120718
  Receipt Date: 20120207
  Transmission Date: 20120928
  Serious: Yes (Hospitalization)
  Sender: FDA-Public Use
  Company Number: FRA-CLT-2012046

PATIENT
  Age: 12 Month
  Sex: Male

DRUGS (5)
  1. CYSTADANE [Suspect]
     Indication: VITAMIN B12 DEFICIENCY
     Dosage: 300;600 MG EVERY DAY, ORAL POWDER
     Route: 048
     Dates: start: 20081027
  2. CYSTADANE [Suspect]
     Indication: VITAMIN B12 DEFICIENCY
     Dosage: 300;600;1200 MG EVERY DAY, ORAL, POWDER
     Route: 048
     Dates: start: 20081027
  3. LEUCOVORIN CALCIUM [Concomitant]
  4. L-CARNITINE [Concomitant]
  5. VITAMIN B-12 [Concomitant]

REACTIONS (7)
  - GASTROENTERITIS [None]
  - BLOOD HOMOCYSTEINE INCREASED [None]
  - CONJUNCTIVITIS [None]
  - LABORATORY TEST ABNORMAL [None]
  - ECZEMA [None]
  - BLOOD GLUCOSE DECREASED [None]
  - ABDOMINAL PAIN [None]
